FAERS Safety Report 9384348 (Version 2)
Quarter: 2013Q3

REPORT INFORMATION
  Report Type: Spontaneous
  Country: GB (occurrence: GB)
  Receive Date: 20130705
  Receipt Date: 20130814
  Transmission Date: 20140515
  Serious: Yes (Hospitalization)
  Sender: FDA-Public Use
  Company Number: PHFR2013GB003504

PATIENT
  Sex: Male

DRUGS (12)
  1. CLOZARIL [Suspect]
     Indication: SCHIZOPHRENIA
     Dosage: UNK
     Route: 048
     Dates: start: 20130528
  2. CLOZARIL [Suspect]
     Dosage: 100 MG, QD
     Route: 048
  3. CLOZARIL [Suspect]
     Dosage: 200 MG, QD
     Route: 048
  4. LAMOTRIGIN [Concomitant]
     Dosage: 100 MG, BID
     Route: 048
  5. CLONAZEPAM [Concomitant]
     Dosage: 500 MG, BID
     Route: 048
  6. EPILIM CHRONO [Concomitant]
     Dosage: 15, BID
     Route: 048
  7. FLUOXETINA [Concomitant]
     Dosage: 80 MG, QD
     Route: 048
  8. FOLIC ACID [Concomitant]
     Dosage: 5 MG, QD
     Route: 048
  9. MOVICOL [Concomitant]
     Dosage: 2 DF, TID
  10. LACTULOSE [Concomitant]
     Dosage: 15 MG, BID
     Route: 048
  11. PARACETAMOL [Concomitant]
     Dosage: 15 UKN, QD
     Route: 048
  12. LAXATIVES [Concomitant]
     Dosage: UNK

REACTIONS (1)
  - Constipation [Recovering/Resolving]
